FAERS Safety Report 8525620-4 (Version None)
Quarter: 2012Q3

REPORT INFORMATION
  Report Type: 
  Country: None (occurrence: None)
  Receive Date: 20120720
  Receipt Date: 20120628
  Transmission Date: 20120928
  Serious: Yes (Death, Disabling)
  Sender: FDA-Public Use
  Company Number: US-009507513-2012SP031149

PATIENT

DRUGS (1)
  1. NASONEX [Suspect]
     Dosage: 2 SPRAYS IN EACH NOSTRIL AT NIGHT
     Dates: start: 20020101

REACTIONS (6)
  - DRUG DOSE OMISSION [None]
  - LACRIMATION INCREASED [None]
  - DISABILITY [None]
  - COUGH [None]
  - DRUG ADMINISTRATION ERROR [None]
  - NO THERAPEUTIC RESPONSE [None]
